FAERS Safety Report 13334067 (Version 2)
Quarter: 2017Q1

REPORT INFORMATION
  Report Type: Report from Study
  Country: None (occurrence: SE)
  Receive Date: 20170313
  Receipt Date: 20170320
  Transmission Date: 20170428
  Serious: Yes (Death)
  Sender: FDA-Public Use
  Company Number: SE-ABBVIE-17P-150-1901167-00

PATIENT
  Sex: Female

DRUGS (6)
  1. FURIX [Concomitant]
     Active Substance: FUROSEMIDE
     Indication: PALLIATIVE CARE
  2. DUODOPA [Suspect]
     Active Substance: CARBIDOPA\LEVODOPA
     Indication: PARKINSON^S DISEASE
     Route: 050
     Dates: start: 20090202, end: 20090216
  3. DUODOPA [Suspect]
     Active Substance: CARBIDOPA\LEVODOPA
     Route: 050
     Dates: start: 20090216, end: 20170306
  4. ROBINUL [Concomitant]
     Active Substance: GLYCOPYRROLATE
     Indication: PALLIATIVE CARE
  5. ALVEDON [Concomitant]
     Active Substance: ACETAMINOPHEN
     Indication: PRODUCT USED FOR UNKNOWN INDICATION
  6. OXASCAND [Concomitant]
     Active Substance: OXAZEPAM
     Indication: PRODUCT USED FOR UNKNOWN INDICATION
     Dosage: IN THE EVENING

REACTIONS (8)
  - Parkinson^s disease [Unknown]
  - Hallucination [Unknown]
  - Condition aggravated [Fatal]
  - Drug effect decreased [Unknown]
  - Hypophagia [Unknown]
  - Musculoskeletal stiffness [Unknown]
  - Death [Fatal]
  - General physical health deterioration [Fatal]
